FAERS Safety Report 17711237 (Version 1)
Quarter: 2020Q2

REPORT INFORMATION
  Report Type: Other
  Country: IT (occurrence: IT)
  Receive Date: 20200427
  Receipt Date: 20200427
  Transmission Date: 20200714
  Serious: Yes (Other)
  Sender: FDA-Public Use
  Company Number: IT-DEXPHARM-20200357

PATIENT
  Age: 69 Year
  Sex: Male
  Weight: 70 kg

DRUGS (3)
  1. RIVAROXABAN [Suspect]
     Active Substance: RIVAROXABAN
     Indication: ATRIAL FIBRILLATION
     Dosage: 20 MG/D
  2. LEVETIRACETAM. [Suspect]
     Active Substance: LEVETIRACETAM
     Indication: SEIZURE
     Dosage: 1500 MG/D ORALLY
     Route: 048
  3. LACOSAMIDE. [Concomitant]
     Active Substance: LACOSAMIDE

REACTIONS (2)
  - Transient ischaemic attack [Recovering/Resolving]
  - Drug interaction [Recovered/Resolved]
